FAERS Safety Report 14219997 (Version 3)
Quarter: 2018Q1

REPORT INFORMATION
  Report Type: Spontaneous
  Country: US (occurrence: US)
  Receive Date: 20171123
  Receipt Date: 20180320
  Transmission Date: 20180508
  Serious: Yes (Other)
  Sender: FDA-Public Use
  Company Number: US-JNJFOC-20171117679

PATIENT
  Age: 65 Year
  Sex: Male

DRUGS (13)
  1. COMPAZINE [Concomitant]
     Active Substance: PROCHLORPERAZINE MALEATE
     Indication: VOMITING
     Route: 048
     Dates: start: 20161214, end: 20171025
  2. BENADRYL [Concomitant]
     Active Substance: DIPHENHYDRAMINE HYDROCHLORIDE
     Route: 048
     Dates: start: 20161214, end: 20171025
  3. DEXAMETHASONE. [Suspect]
     Active Substance: DEXAMETHASONE
     Indication: PLASMA CELL MYELOMA
     Dates: start: 20161214, end: 20171025
  4. VELCADE [Suspect]
     Active Substance: BORTEZOMIB
     Indication: PLASMA CELL MYELOMA
     Dates: start: 20161214, end: 20171025
  5. VITAMIN D3 [Concomitant]
     Active Substance: CHOLECALCIFEROL
     Dates: start: 20161214, end: 20171025
  6. DARZALEX [Suspect]
     Active Substance: DARATUMUMAB
     Indication: PLASMA CELL MYELOMA
     Route: 042
     Dates: start: 20161214, end: 20171025
  7. ASCORBIC ACID. [Concomitant]
     Active Substance: ASCORBIC ACID
     Dosage: AS NEEDED
     Route: 048
     Dates: start: 20161214, end: 20171025
  8. CALCIUM CARBONATE. [Concomitant]
     Active Substance: CALCIUM CARBONATE
     Route: 048
     Dates: start: 20161214, end: 20171025
  9. COMPAZINE [Concomitant]
     Active Substance: PROCHLORPERAZINE MALEATE
     Indication: NAUSEA
     Route: 048
     Dates: start: 20161214, end: 20171025
  10. TYLONOL [Concomitant]
     Dosage: AS NEEDED
     Route: 048
     Dates: start: 20161214, end: 20171025
  11. ZOVIRAX [Concomitant]
     Active Substance: ACYCLOVIR
     Dosage: AS NEEDED
     Route: 048
     Dates: start: 20161214, end: 20171025
  12. ASPIRIN. [Concomitant]
     Active Substance: ASPIRIN
     Route: 048
     Dates: start: 20161214, end: 20171025
  13. MULTIVITAMIN WITH MINERALS [Concomitant]
     Active Substance: MINERALS\VITAMINS
     Route: 048
     Dates: start: 20161214, end: 20171025

REACTIONS (4)
  - Monoclonal immunoglobulin present [Not Recovered/Not Resolved]
  - Drug ineffective [Not Recovered/Not Resolved]
  - Light chain analysis increased [Not Recovered/Not Resolved]
  - Disease progression [Not Recovered/Not Resolved]

NARRATIVE: CASE EVENT DATE: 20171025
